FAERS Safety Report 6044914-8 (Version None)
Quarter: 2009Q1

REPORT INFORMATION
  Report Type: 
  Country: None (occurrence: None)
  Receive Date: 20090116
  Receipt Date: 20090116
  Transmission Date: 20090719
  Serious: Yes (Life-Threatening)
  Sender: FDA-Public Use
  Company Number: None

PATIENT
  Sex: Male
  Weight: 69.8539 kg

DRUGS (3)
  1. MAXAIR [Suspect]
  2. PROAIR HFA [Suspect]
  3. ALBUTEROL SULATE [Suspect]

REACTIONS (2)
  - DYSPNOEA [None]
  - PRODUCT QUALITY ISSUE [None]
